FAERS Safety Report 13822267 (Version 1)
Quarter: 2017Q3

REPORT INFORMATION
  Report Type: Spontaneous
  Country: US (occurrence: US)
  Receive Date: 20170801
  Receipt Date: 20170801
  Transmission Date: 20171127
  Serious: No
  Sender: FDA-Public Use
  Company Number: None

PATIENT
  Age: 84 Year
  Sex: Male
  Weight: 74.39 kg

DRUGS (10)
  1. MIDODRINE 5MG [Suspect]
     Active Substance: MIDODRINE
     Indication: HYPOTENSION
     Dosage: ?          QUANTITY:(MIMIC BI ^0;?
     Route: 048
  2. MIDODRINE 5MG [Suspect]
     Active Substance: MIDODRINE
     Indication: POST PROCEDURAL COMPLICATION
     Dosage: ?          QUANTITY:(MIMIC BI ^0;?
     Route: 048
  3. DIGOXIN. [Concomitant]
     Active Substance: DIGOXIN
  4. FISH OIL [Concomitant]
     Active Substance: FISH OIL
  5. MIDODRINE 5MG [Suspect]
     Active Substance: MIDODRINE
     Indication: CARDIAC OPERATION
     Dosage: ?          QUANTITY:(MIMIC BI ^0;?
     Route: 048
  6. FOSAMAX [Concomitant]
     Active Substance: ALENDRONATE SODIUM
  7. CENTRUM [Concomitant]
     Active Substance: VITAMINS
  8. BABY ASA [Concomitant]
     Active Substance: ASPIRIN
  9. VITAMIN D3 [Concomitant]
     Active Substance: CHOLECALCIFEROL
  10. DOCUSATE [Concomitant]
     Active Substance: DOCUSATE

REACTIONS (2)
  - Syncope [None]
  - Product substitution issue [None]

NARRATIVE: CASE EVENT DATE: 201707
